FAERS Safety Report 7042676-9 (Version None)
Quarter: 2010Q4

REPORT INFORMATION
  Report Type: 
  Country: None (occurrence: None)
  Receive Date: 20101013
  Receipt Date: 20100322
  Transmission Date: 20110411
  Serious: No
  Sender: FDA-Public Use
  Company Number: US-ASTRAZENECA-2010SE12461

PATIENT
  Sex: Female

DRUGS (7)
  1. SYMBICORT [Suspect]
     Indication: ASTHMA
     Route: 055
     Dates: end: 20091201
  2. SYMBICORT [Suspect]
     Indication: CHRONIC OBSTRUCTIVE PULMONARY DISEASE
     Route: 055
     Dates: end: 20091201
  3. STEROIDS [Concomitant]
  4. ALBUTEROL [Concomitant]
  5. BUDESONIDE RESPULES [Concomitant]
  6. LEVAQUIN [Concomitant]
  7. ZITHROMAX [Concomitant]

REACTIONS (3)
  - COUGH [None]
  - DYSPNOEA [None]
  - LUNG DISORDER [None]
